FAERS Safety Report 20906055 (Version 1)
Quarter: 2022Q2

REPORT INFORMATION
  Report Type: Spontaneous
  Country: US (occurrence: US)
  Receive Date: 20220602
  Receipt Date: 20220602
  Transmission Date: 20220721
  Serious: Yes (Hospitalization, Disabling)
  Sender: FDA-Public Use
  Company Number: US-TEVA-2022-US-2042589

PATIENT

DRUGS (2)
  1. CLINDAMYCIN [Suspect]
     Active Substance: CLINDAMYCIN
  2. CLEOCIN [Suspect]
     Active Substance: CLINDAMYCIN PHOSPHATE

REACTIONS (6)
  - Rash [Unknown]
  - Skin lesion [Unknown]
  - Blister [Unknown]
  - Skin burning sensation [Unknown]
  - Skin exfoliation [Unknown]
  - Scar [Not Recovered/Not Resolved]
